FAERS Safety Report 5510073-0 (Version None)
Quarter: 2007Q4

REPORT INFORMATION
  Report Type: 
  Country: None (occurrence: None)
  Receive Date: 20071108
  Receipt Date: 20070927
  Transmission Date: 20080405
  Serious: No
  Sender: FDA-Public Use
  Company Number: US-ABBOTT-07P-163-0418770-00

PATIENT
  Sex: Female

DRUGS (3)
  1. BIAXIN [Suspect]
     Indication: DRUG USE FOR UNKNOWN INDICATION
     Route: 048
  2. LEVOSALBUTAMOL [Suspect]
     Indication: BRONCHITIS
     Route: 055
     Dates: start: 20061224, end: 20061224
  3. LEVOSALBUTAMOL [Suspect]
     Route: 055
     Dates: start: 20061225

REACTIONS (3)
  - DIZZINESS [None]
  - SYNCOPE [None]
  - TACHYCARDIA [None]
